FAERS Safety Report 15596604 (Version 3)
Quarter: 2018Q4

REPORT INFORMATION
  Report Type: Report from Study
  Country: US (occurrence: US)
  Receive Date: 20181107
  Receipt Date: 20181117
  Transmission Date: 20190205
  Serious: Yes (Other)
  Sender: FDA-Public Use
  Company Number: US-TEVA-2018-US-972708

PATIENT
  Age: 32 Year
  Sex: Female

DRUGS (5)
  1. FLUOCINONIDE. [Suspect]
     Active Substance: FLUOCINONIDE
     Indication: DERMATITIS ATOPIC
     Route: 061
  2. HYDROCORTISONE. [Suspect]
     Active Substance: HYDROCORTISONE
     Indication: DERMATITIS ATOPIC
     Route: 061
  3. TRIAMCINOLONE [Suspect]
     Active Substance: TRIAMCINOLONE
     Indication: DERMATITIS ATOPIC
     Route: 061
  4. CLOBETASOL [Suspect]
     Active Substance: CLOBETASOL
     Indication: DERMATITIS ATOPIC
     Route: 061
  5. TACROLIMUS. [Suspect]
     Active Substance: TACROLIMUS
     Indication: DERMATITIS ATOPIC
     Dosage: .2 PERCENT DAILY; 0.1% TWICE A DAY
     Route: 065

REACTIONS (5)
  - Steroid withdrawal syndrome [Recovering/Resolving]
  - Skin plaque [Recovering/Resolving]
  - Rash erythematous [Recovering/Resolving]
  - Drug ineffective [Unknown]
  - Eczema [Recovering/Resolving]
